FAERS Safety Report 19073853 (Version 1)
Quarter: 2021Q1

REPORT INFORMATION
  Report Type: Spontaneous
  Country: US (occurrence: US)
  Receive Date: 20210330
  Receipt Date: 20210330
  Transmission Date: 20210420
  Serious: Yes (Death, Life-Threatening, Hospitalization, Other)
  Sender: FDA-Public Use
  Company Number: US-UNITED THERAPEUTICS-UNT-2021-005016

PATIENT
  Age: 23 Month
  Sex: Female

DRUGS (3)
  1. GM?CSF [Suspect]
     Active Substance: GRANULOCYTE-MACROPHAGE COLONY-STIMULATING FACTOR
     Indication: NEUROBLASTOMA
     Dosage: UNK
     Route: 065
  2. UNITUXIN [Suspect]
     Active Substance: DINUTUXIMAB
     Indication: NEUROBLASTOMA
     Dosage: UNK, CYCLICAL
     Route: 041
  3. ISOTRETINOIN. [Suspect]
     Active Substance: ISOTRETINOIN
     Indication: NEUROBLASTOMA
     Dosage: UNK
     Route: 065

REACTIONS (10)
  - Capillary leak syndrome [Unknown]
  - Disseminated intravascular coagulation [Unknown]
  - Shock [Unknown]
  - Inflammation [Unknown]
  - Transaminases increased [Unknown]
  - Pneumothorax [Fatal]
  - Respiratory failure [Unknown]
  - Cardiac dysfunction [Unknown]
  - Pulmonary hypertension [Unknown]
  - SARS-CoV-2 test positive [Unknown]
